FAERS Safety Report 13961322 (Version 1)
Quarter: 2017Q3

REPORT INFORMATION
  Report Type: Spontaneous
  Country: US (occurrence: None)
  Receive Date: 20170912
  Receipt Date: 20170912
  Transmission Date: 20171128
  Serious: Yes (Life-Threatening)
  Sender: FDA-Public Use
  Company Number: None

PATIENT
  Age: 59 Year
  Sex: Male
  Weight: 99.34 kg

DRUGS (4)
  1. CALCIUM PLUS D3 [Concomitant]
  2. PROVASTIN [Concomitant]
  3. TAMSULOSIN [Concomitant]
     Active Substance: TAMSULOSIN
  4. ARIPIPIRAZOLE [Suspect]
     Active Substance: ARIPIPRAZOLE
     Indication: HALLUCINATION
     Dates: start: 20170804

REACTIONS (1)
  - Somnambulism [None]

NARRATIVE: CASE EVENT DATE: 20170804
